FAERS Safety Report 5927094-6 (Version None)
Quarter: 2008Q4

REPORT INFORMATION
  Report Type: 
  Country: None (occurrence: None)
  Receive Date: 20081022
  Receipt Date: 20081018
  Transmission Date: 20090506
  Serious: No
  Sender: FDA-Public Use
  Company Number: US-B.I. PHARMACEUTICALS,INC./RIDGEFIELD-2008-BP-16033BP

PATIENT
  Sex: Female

DRUGS (7)
  1. SPIRIVA [Suspect]
     Indication: CHRONIC OBSTRUCTIVE PULMONARY DISEASE
     Dosage: 18MCG
     Route: 055
     Dates: start: 20060101
  2. HYZAAR [Concomitant]
     Indication: HYPERTENSION
  3. LIPITOR [Concomitant]
     Indication: BLOOD CHOLESTEROL INCREASED
  4. SOTALOL [Concomitant]
     Indication: HYPERTENSION
  5. CAHRA XT [Concomitant]
     Indication: CARDIAC DISORDER
  6. COUMADIN [Concomitant]
     Indication: CARDIAC DISORDER
  7. DIGOXIN [Concomitant]
     Indication: CARDIAC DISORDER

REACTIONS (1)
  - CONSTIPATION [None]
